FAERS Safety Report 9702250 (Version 1)
Quarter: 2013Q4

REPORT INFORMATION
  Report Type: Spontaneous
  Country: US (occurrence: None)
  Receive Date: 20131119
  Receipt Date: 20131119
  Transmission Date: 20140711
  Serious: Yes (Other)
  Sender: FDA-Public Use
  Company Number: 2013US002444

PATIENT
  Age: 59 Year
  Sex: Female
  Weight: 62 kg

DRUGS (4)
  1. ICLUSIG (PONATINIB) TABLET, 15MG [Suspect]
     Indication: CHRONIC MYELOID LEUKAEMIA
     Route: 048
     Dates: start: 20130117
  2. LISINOPRIL (LISINOPRIL) [Concomitant]
  3. NIFEDICAL (NIFEDIPINE) [Concomitant]
  4. COREG (CARVEDILOL) [Concomitant]

REACTIONS (6)
  - Skin exfoliation [None]
  - Weight increased [None]
  - Swelling face [None]
  - Dry skin [None]
  - Hypertension [None]
  - Rash erythematous [None]
